FAERS Safety Report 10668056 (Version 1)
Quarter: 2014Q4

REPORT INFORMATION
  Report Type: Spontaneous
  Country: IT (occurrence: IT)
  Receive Date: 20141222
  Receipt Date: 20141222
  Transmission Date: 20150529
  Serious: Yes (Hospitalization)
  Sender: FDA-Public Use
  Company Number: IT-SA-2014SA171624

PATIENT
  Age: 81 Year
  Sex: Female

DRUGS (10)
  1. AMIODARONE [Concomitant]
     Active Substance: AMIODARONE
  2. LASIX [Suspect]
     Active Substance: FUROSEMIDE
     Route: 048
     Dates: start: 20141121, end: 20141124
  3. ROCALTROL [Concomitant]
     Active Substance: CALCITRIOL
     Route: 048
  4. TACHIDOL [Concomitant]
     Active Substance: ACETAMINOPHEN\CODEINE PHOSPHATE
     Route: 048
  5. DELTACORTENE [Concomitant]
     Active Substance: PREDNISONE
     Route: 048
  6. CLEXANE [Concomitant]
     Active Substance: ENOXAPARIN SODIUM
     Dosage: 4000 IU AXA/0.4 ML INJECTABLE ?SOLUTION, 0.4 ML PRE-FILLED SYRINGE
     Route: 058
  7. DOBETIN [Concomitant]
     Active Substance: CYANOCOBALAMIN
     Route: 030
  8. OXYGEN. [Concomitant]
     Active Substance: OXYGEN
     Route: 055
  9. PANTOPRAZOLE [Concomitant]
     Active Substance: PANTOPRAZOLE SODIUM
     Dosage: STRENGTH: 40 MG
     Route: 048
  10. CARDICOR [Concomitant]
     Active Substance: BISOPROLOL
     Dosage: STRENGTH: 1.25 MG
     Route: 048

REACTIONS (4)
  - Dyspnoea [Unknown]
  - Cardiac failure [Unknown]
  - Respiratory failure [Unknown]
  - Pulmonary oedema [Unknown]

NARRATIVE: CASE EVENT DATE: 20141124
